FAERS Safety Report 6609292-1 (Version None)
Quarter: 2010Q1

REPORT INFORMATION
  Report Type: 
  Country: None (occurrence: None)
  Receive Date: 20100224
  Receipt Date: 20100215
  Transmission Date: 20100710
  Serious: Yes (Hospitalization)
  Sender: FDA-Public Use
  Company Number: B0635190A

PATIENT
  Age: 63 Year
  Sex: Male

DRUGS (2)
  1. AZITHROMYCIN [Suspect]
     Indication: BABESIOSIS
     Dosage: 600 MG / PER DAY / ORAL
     Route: 048
     Dates: start: 20080115
  2. ATOVAQUONE (ATOVAQUONE) (FORMULATION UNKNOWN) (GENERIC) [Suspect]
     Indication: BABESIOSIS
     Dosage: 750 MG / TWICE PER DAY / ORAL
     Route: 048
     Dates: start: 20080115

REACTIONS (10)
  - BABESIOSIS [None]
  - CHILLS [None]
  - CONDITION AGGRAVATED [None]
  - DRUG INTOLERANCE [None]
  - DRUG RESISTANCE [None]
  - GRANULOCYTOPENIA [None]
  - HYPOGAMMAGLOBULINAEMIA [None]
  - PYREXIA [None]
  - TREATMENT FAILURE [None]
  - WEIGHT DECREASED [None]
